FAERS Safety Report 11430192 (Version 1)
Quarter: 2015Q3

REPORT INFORMATION
  Report Type: Spontaneous
  Country: US (occurrence: US)
  Receive Date: 20150828
  Receipt Date: 20150828
  Transmission Date: 20151125
  Serious: Yes (Other)
  Sender: FDA-Public Use
  Company Number: US-BEH-2015053298

PATIENT
  Sex: Female
  Weight: 65 kg

DRUGS (11)
  1. AVAPRO [Concomitant]
     Active Substance: IRBESARTAN
  2. ESTRADIOL. [Concomitant]
     Active Substance: ESTRADIOL
  3. FOSAMAX [Concomitant]
     Active Substance: ALENDRONATE SODIUM
  4. NEXIUM [Concomitant]
     Active Substance: ESOMEPRAZOLE MAGNESIUM
  5. LIDOCAINE/PRILOCAINE [Concomitant]
     Indication: PREMEDICATION
  6. EPIPEN [Concomitant]
     Active Substance: EPINEPHRINE
     Indication: ANAPHYLACTIC REACTION
  7. CELEBREX [Concomitant]
     Active Substance: CELECOXIB
  8. ESTROGEN METHYLTESTOSTERONE [Concomitant]
  9. HIZENTRA [Suspect]
     Active Substance: HUMAN IMMUNOGLOBULIN G
     Indication: IMMUNODEFICIENCY COMMON VARIABLE
     Dosage: 4 GM 20 ML VIAL
     Route: 058
  10. DIPHENHYDRAMINE. [Concomitant]
     Active Substance: DIPHENHYDRAMINE
     Indication: ANAPHYLACTIC REACTION
  11. ZOLOFT [Concomitant]
     Active Substance: SERTRALINE HYDROCHLORIDE

REACTIONS (3)
  - Staphylococcal infection [Unknown]
  - Abdominal distension [Unknown]
  - Generalised oedema [Unknown]
